FAERS Safety Report 9865861 (Version 2)
Quarter: 2014Q1

REPORT INFORMATION
  Report Type: Spontaneous
  Country: US (occurrence: US)
  Receive Date: 20140203
  Receipt Date: 20140203
  Transmission Date: 20141002
  Serious: No
  Sender: FDA-Public Use
  Company Number: US-ALLERGAN-1311646US

PATIENT
  Sex: Female

DRUGS (7)
  1. RESTASIS [Suspect]
     Indication: DRY EYE
     Dosage: 2 UNK, UNK
     Route: 047
  2. UNKNOWN MEDICATION [Suspect]
     Indication: RASH
  3. BENADRYL /00000402/ [Suspect]
     Indication: RASH
  4. STEROIDS NOS [Suspect]
     Indication: PRODUCT USED FOR UNKNOWN INDICATION
  5. CLEAR DROPS NOS [Concomitant]
     Indication: DRY EYE
  6. AMLODIPINE [Concomitant]
     Indication: HYPERTENSION
  7. GLIPIZIDE [Concomitant]
     Indication: DIABETES MELLITUS

REACTIONS (5)
  - Somnolence [Recovering/Resolving]
  - Rash pruritic [Recovering/Resolving]
  - Rash pruritic [Recovering/Resolving]
  - Dizziness [Recovering/Resolving]
  - Eye pruritus [Recovered/Resolved]
